FAERS Safety Report 6764410-X (Version None)
Quarter: 2010Q2

REPORT INFORMATION
  Report Type: 
  Country: None (occurrence: None)
  Receive Date: 20100609
  Receipt Date: 20100505
  Transmission Date: 20101027
  Serious: No
  Sender: FDA-Public Use
  Company Number: 2010010962

PATIENT
  Age: 3 Year
  Sex: Female
  Weight: 15.4223 kg

DRUGS (3)
  1. CHILDREN'S ZYRTEC ALLERGY [Suspect]
     Indication: RHINORRHOEA
     Dosage: 1/2 TO 1 TEASPOON 2 TIMES A DAY, ORAL
     Route: 048
     Dates: start: 20100415
  2. PARACETAMOL (PARACETAMOL) [Concomitant]
  3. IBUPROFEN [Concomitant]

REACTIONS (2)
  - DRUG INEFFECTIVE [None]
  - PRODUCT QUALITY ISSUE [None]
